FAERS Safety Report 9491775 (Version 2)
Quarter: 2013Q3

REPORT INFORMATION
  Report Type: Not Available
  Country: US (occurrence: US)
  Receive Date: 20130919
  Receipt Date: 20130919
  Transmission Date: 20140515
  Serious: No
  Sender: FDA-Public Use
  Company Number: US-LUNDBECK-DKLU1082285

PATIENT
  Sex: Female

DRUGS (4)
  1. SABRIL (TABLET) [Suspect]
     Indication: INFANTILE SPASMS
     Dosage: 1/2 TAB
     Route: 048
     Dates: start: 20120525
  2. SABRIL (TABLET) [Suspect]
     Dosage: 1/2 TAB
     Route: 048
  3. SABRIL (TABLET) [Suspect]
     Dosage: 1/2 TAB
     Route: 048
     Dates: end: 20120613
  4. SABRIL (TABLET) [Suspect]
     Dosage: 1 TAB
     Route: 048
     Dates: end: 20120613

REACTIONS (2)
  - Drug ineffective [Unknown]
  - Treatment failure [Unknown]
